FAERS Safety Report 25332990 (Version 2)
Quarter: 2025Q3

REPORT INFORMATION
  Report Type: Spontaneous
  Country: US (occurrence: US)
  Receive Date: 20250519
  Receipt Date: 20250721
  Transmission Date: 20251020
  Serious: No
  Sender: SANOFI AVENTIS
  Company Number: US-SA-2025SA141089

PATIENT
  Age: 52 Year
  Sex: Female

DRUGS (1)
  1. REZUROCK [Suspect]
     Active Substance: BELUMOSUDIL
     Indication: Myelodysplastic syndrome
     Dosage: 200 MG, QD
     Route: 048
     Dates: start: 20250418

REACTIONS (4)
  - Gastrointestinal disorder [Unknown]
  - Liver function test abnormal [Unknown]
  - Maternal exposure during pregnancy [Unknown]
  - Product use in unapproved indication [Unknown]

NARRATIVE: CASE EVENT DATE: 20250101
